FAERS Safety Report 9118286 (Version 1)
Quarter: 2013Q1

REPORT INFORMATION
  Report Type: Spontaneous
  Country: US (occurrence: None)
  Receive Date: 20130221
  Receipt Date: 20130221
  Transmission Date: 20140127
  Serious: Yes (Life-Threatening, Hospitalization, Other)
  Sender: FDA-Public Use
  Company Number: None

PATIENT
  Sex: Male
  Weight: 97.52 kg

DRUGS (1)
  1. LUNESTA 2 MG [Suspect]
     Dosage: TOOK  2  NIGHTLY?JAN 10TH OR SO

REACTIONS (2)
  - Somnambulism [None]
  - Road traffic accident [None]
